FAERS Safety Report 9246651 (Version 2)
Quarter: 2013Q2

REPORT INFORMATION
  Report Type: Spontaneous
  Country: US (occurrence: US)
  Receive Date: 20130422
  Receipt Date: 20130422
  Transmission Date: 20140414
  Serious: No
  Sender: FDA-Public Use
  Company Number: US-ABBOTT-12P-163-0971683-00

PATIENT
  Age: 10 Year
  Sex: Female
  Weight: 26.33 kg

DRUGS (2)
  1. LUPRON DEPOT-PED 11.25 MG (3 MONTH) [Suspect]
     Indication: PRECOCIOUS PUBERTY
     Dates: start: 201203
  2. NEUPOGEN [Concomitant]
     Indication: PRODUCT USED FOR UNKNOWN INDICATION

REACTIONS (1)
  - Chromosome analysis abnormal [Not Recovered/Not Resolved]
